FAERS Safety Report 21980145 (Version 1)
Quarter: 2023Q1

REPORT INFORMATION
  Report Type: Spontaneous
  Country: GB (occurrence: GB)
  Receive Date: 20230210
  Receipt Date: 20230210
  Transmission Date: 20230418
  Serious: Yes (Other)
  Sender: FDA-Public Use
  Company Number: GB-MHRA-MED-202301282005235020-LBZKH

PATIENT
  Age: 49 Year
  Sex: Male
  Weight: 92 kg

DRUGS (2)
  1. DULOXETINE HYDROCHLORIDE [Suspect]
     Active Substance: DULOXETINE HYDROCHLORIDE
     Indication: Adverse drug reaction
     Dosage: 60 MG, UNKNOWN
     Route: 065
     Dates: start: 20230127, end: 20230128
  2. TRAMADOL [Suspect]
     Active Substance: TRAMADOL
     Indication: Adverse drug reaction
     Dosage: 50 MG, OTHER (ONE OR TWO EVERY FOUR TO SIX HOURS)
     Route: 065
     Dates: start: 20230106, end: 20230127

REACTIONS (9)
  - Toxicity to various agents [Not Recovered/Not Resolved]
  - Vision blurred [Not Recovered/Not Resolved]
  - Mydriasis [Not Recovered/Not Resolved]
  - Cold sweat [Not Recovered/Not Resolved]
  - Lethargy [Not Recovered/Not Resolved]
  - Somnolence [Not Recovered/Not Resolved]
  - Gait disturbance [Not Recovered/Not Resolved]
  - Dry mouth [Not Recovered/Not Resolved]
  - Off label use [Unknown]

NARRATIVE: CASE EVENT DATE: 20230128
